FAERS Safety Report 9690572 (Version 2)
Quarter: 2014Q1

REPORT INFORMATION
  Report Type: Report from Study
  Country: FR (occurrence: FR)
  Receive Date: 20131115
  Receipt Date: 20140113
  Transmission Date: 20141002
  Serious: Yes (Other)
  Sender: FDA-Public Use
  Company Number: FR-SA-2013SA116785

PATIENT
  Age: 12 Month
  Sex: Male

DRUGS (7)
  1. CAMPATH [Suspect]
     Indication: LYMPHOHISTIOCYTOSIS
     Dosage: 3.8MG IN 8 HOURS
     Route: 042
     Dates: start: 20130610, end: 20130610
  2. CAMPATH [Suspect]
     Indication: LYMPHOHISTIOCYTOSIS
     Dosage: 8 MG OVER 10 HOURS
     Route: 042
     Dates: start: 20130611, end: 20130611
  3. CAMPATH [Suspect]
     Indication: LYMPHOHISTIOCYTOSIS
     Dosage: 7.8 MG OVER 10 HOURS
     Route: 042
     Dates: start: 20130612, end: 20130612
  4. ANTIFUNGALS [Suspect]
     Indication: PRODUCT USED FOR UNKNOWN INDICATION
     Route: 065
  5. METHYLPREDNISOLONE [Concomitant]
     Route: 065
     Dates: start: 20130610, end: 20130610
  6. METHYLPREDNISOLONE [Concomitant]
     Route: 065
     Dates: start: 20130611, end: 20130611
  7. POLARAMINE [Concomitant]
     Indication: PREMEDICATION
     Route: 065
     Dates: start: 20130612

REACTIONS (2)
  - Urticaria [Recovered/Resolved]
  - Hepatocellular injury [Unknown]
